FAERS Safety Report 7968922-2 (Version None)
Quarter: 2011Q4

REPORT INFORMATION
  Report Type: 
  Country: None (occurrence: None)
  Receive Date: 20111209
  Receipt Date: 20111206
  Transmission Date: 20120403
  Serious: Yes (Other)
  Sender: FDA-Public Use
  Company Number: DE-BAYER-2011-117009

PATIENT

DRUGS (1)
  1. GADAVIST [Suspect]

REACTIONS (2)
  - ANGIOEDEMA [None]
  - PRODUCT QUALITY ISSUE [None]
